FAERS Safety Report 5156797-9 (Version None)
Quarter: 2006Q4

REPORT INFORMATION
  Report Type: 
  Country: None (occurrence: None)
  Receive Date: 20061115
  Receipt Date: 20061030
  Transmission Date: 20070319
  Serious: Yes (Death)
  Sender: FDA-Public Use
  Company Number: 15121

PATIENT
  Age: 29 Year
  Sex: Male

DRUGS (10)
  1. ETOPOSIDE [Suspect]
     Indication: TESTICULAR CANCER METASTATIC
     Dosage: 950 MG DAILY
     Dates: start: 20051010, end: 20061013
  2. CARBOPLATIN [Suspect]
     Indication: TESTICULAR CANCER METASTATIC
     Dosage: 1250 MG DAILY
     Dates: start: 20061010, end: 20061013
  3. ZOFRAN [Concomitant]
  4. DUSSELDORF BLANDING [Concomitant]
  5. CYCLOPHOSPHAMIDE [Suspect]
     Indication: TESTICULAR CANCER METASTATIC
     Dosage: 3000 MG DAILY
     Dates: start: 20061010, end: 20061013
  6. MESNA [Concomitant]
  7. FORTUM [Concomitant]
  8. MYCOSTATIN [Concomitant]
  9. PARACET [Concomitant]
  10. LARGACTIL [Concomitant]

REACTIONS (11)
  - BLOOD PRESSURE DECREASED [None]
  - CARDIAC ARREST [None]
  - DEHYDRATION [None]
  - DIALYSIS [None]
  - GASTRITIS [None]
  - METASTASES TO LUNG [None]
  - PERICARDITIS [None]
  - PERITONEAL DISORDER [None]
  - PROCEDURAL COMPLICATION [None]
  - RENAL FAILURE ACUTE [None]
  - RENAL INFARCT [None]
